FAERS Safety Report 7038544-9 (Version None)
Quarter: 2010Q4

REPORT INFORMATION
  Report Type: 
  Country: None (occurrence: None)
  Receive Date: 20101011
  Receipt Date: 20100628
  Transmission Date: 20110411
  Serious: No
  Sender: FDA-Public Use
  Company Number: US-PFIZER INC-2010081196

PATIENT
  Sex: Female

DRUGS (2)
  1. NEURONTIN [Suspect]
     Dosage: 900 MG, 3X/DAY
  2. NEURONTIN [Suspect]
     Dosage: 300 MG, 1X/DAY

REACTIONS (9)
  - ASTHENIA [None]
  - DECREASED APPETITE [None]
  - FEELING HOT [None]
  - INFLUENZA LIKE ILLNESS [None]
  - MALAISE [None]
  - NASOPHARYNGITIS [None]
  - NAUSEA [None]
  - POLLAKIURIA [None]
  - WEIGHT DECREASED [None]
